FAERS Safety Report 8902537 (Version 1)
Quarter: 2012Q4

REPORT INFORMATION
  Report Type: 
  Country: BR (occurrence: BR)
  Receive Date: 20121112
  Receipt Date: 20121112
  Transmission Date: 20130627
  Serious: Yes (Other)
  Sender: FDA-Public Use
  Company Number: BR-ROCHE-1049637

PATIENT
  Sex: Female
  Weight: 65 kg

DRUGS (5)
  1. RIVOTRIL [Suspect]
     Indication: PANIC DISORDER
     Route: 048
     Dates: start: 1991
  2. RIVOTRIL [Suspect]
     Route: 048
     Dates: start: 201111
  3. OMEPRAZOLE [Concomitant]
     Route: 065
  4. PURAN T4 [Concomitant]
     Route: 065
  5. CENTRIUM CARDIO [Concomitant]
     Indication: VITAMIN SUPPLEMENTATION

REACTIONS (4)
  - Angle closure glaucoma [Recovered/Resolved]
  - Drug ineffective [Unknown]
  - Blood cholesterol increased [Unknown]
  - Hormone level abnormal [Recovered/Resolved]
